FAERS Safety Report 7763039-4 (Version None)
Quarter: 2011Q3

REPORT INFORMATION
  Report Type: 
  Country: None (occurrence: None)
  Receive Date: 20110920
  Receipt Date: 20110920
  Transmission Date: 20111222
  Serious: Yes (Death, Other)
  Sender: FDA-Public Use
  Company Number: DE-BAYER-2011-088020

PATIENT
  Sex: Male

DRUGS (1)
  1. BETASERON [Suspect]
     Route: 058

REACTIONS (2)
  - DEATH [None]
  - COMA [None]
